FAERS Safety Report 7025525-4 (Version None)
Quarter: 2010Q4

REPORT INFORMATION
  Report Type: 
  Country: None (occurrence: None)
  Receive Date: 20101003
  Receipt Date: 20100921
  Transmission Date: 20110411
  Serious: Yes (Other)
  Sender: FDA-Public Use
  Company Number: PHHY2010FR63306

PATIENT
  Age: 70 Year
  Sex: Male

DRUGS (5)
  1. RASILEZ [Suspect]
     Dosage: 300 MG, DAILY
     Route: 048
     Dates: start: 20100215
  2. ESIDRIX [Suspect]
     Dosage: UNK
     Dates: end: 20100908
  3. LASIX [Suspect]
     Dosage: 20 MG, DAILY
     Dates: start: 20100104, end: 20100908
  4. HYPERIUM [Concomitant]
     Dosage: 2 DF, DAILY
  5. STILNOX                                 /FRA/ [Concomitant]
     Dosage: UNK

REACTIONS (5)
  - BLOOD UREA DECREASED [None]
  - CONFUSIONAL STATE [None]
  - HYPOKALAEMIA [None]
  - HYPONATRAEMIA [None]
  - URINARY TRACT INFECTION [None]
